FAERS Safety Report 9921737 (Version 1)
Quarter: 2014Q1

REPORT INFORMATION
  Report Type: Spontaneous
  Country: US (occurrence: None)
  Receive Date: 20140221
  Receipt Date: 20140221
  Transmission Date: 20141002
  Serious: Yes (Other)
  Sender: FDA-Public Use
  Company Number: None

PATIENT
  Age: 71 Year
  Sex: Male

DRUGS (1)
  1. LUPRON [Suspect]
     Indication: NEOPLASM MALIGNANT
     Dates: start: 20140207, end: 20140220

REACTIONS (6)
  - Hyperhidrosis [None]
  - Confusional state [None]
  - Agitation [None]
  - Depression [None]
  - Memory impairment [None]
  - Insomnia [None]
